FAERS Safety Report 15308056 (Version 2)
Quarter: 2018Q3

REPORT INFORMATION
  Report Type: Spontaneous
  Country: BR (occurrence: BR)
  Receive Date: 20180822
  Receipt Date: 20180904
  Transmission Date: 20181010
  Serious: Yes (Other)
  Sender: FDA-Public Use
  Company Number: BR-ELI_LILLY_AND_COMPANY-BR201808008452

PATIENT
  Sex: Male

DRUGS (9)
  1. LOSARTAN. [Concomitant]
     Active Substance: LOSARTAN
     Indication: CARDIAC DISORDER
  2. HUMULIN R [Suspect]
     Active Substance: INSULIN HUMAN
     Indication: PRODUCT USED FOR UNKNOWN INDICATION
     Dosage: UNK, UNKNOWN
     Route: 065
  3. GLIFAGE [Concomitant]
     Active Substance: METFORMIN HYDROCHLORIDE
     Indication: PRODUCT USED FOR UNKNOWN INDICATION
     Dosage: UNK, DAILY
     Route: 065
  4. LOSARTAN. [Concomitant]
     Active Substance: LOSARTAN
     Indication: BLOOD PRESSURE ABNORMAL
     Dosage: UNK, UNKNOWN
     Route: 065
  5. AAS [Concomitant]
     Active Substance: ASPIRIN
     Indication: BLOOD PRESSURE ABNORMAL
     Dosage: UNK, UNKNOWN
     Route: 065
  6. HUMALOG [Suspect]
     Active Substance: INSULIN LISPRO
     Indication: PRODUCT USED FOR UNKNOWN INDICATION
     Dosage: UNK, UNKNOWN
     Route: 065
  7. HUMULIN N [Concomitant]
     Active Substance: INSULIN HUMAN
     Indication: PRODUCT USED FOR UNKNOWN INDICATION
     Dosage: 30 IU, EACH MORNING
     Route: 065
  8. HUMULIN N [Concomitant]
     Active Substance: INSULIN HUMAN
     Dosage: 30 IU, EACH EVENING
     Route: 065
  9. AAS [Concomitant]
     Active Substance: ASPIRIN
     Indication: CARDIAC DISORDER

REACTIONS (3)
  - Visual impairment [Not Recovered/Not Resolved]
  - Blindness [Not Recovered/Not Resolved]
  - Retinal detachment [Not Recovered/Not Resolved]

NARRATIVE: CASE EVENT DATE: 2015
